FAERS Safety Report 22951940 (Version 2)
Quarter: 2023Q4

REPORT INFORMATION
  Report Type: Report from Study
  Country: US (occurrence: US)
  Receive Date: 20230918
  Receipt Date: 20231213
  Transmission Date: 20240109
  Serious: No
  Sender: FDA-Public Use
  Company Number: US-BIOVITRUM-2023-US-014869

PATIENT
  Age: 55 Year
  Sex: Female

DRUGS (1)
  1. KINERET [Suspect]
     Active Substance: ANAKINRA
     Indication: Amyloidosis
     Dosage: DAILY
     Route: 058
     Dates: start: 20230811

REACTIONS (4)
  - Intentional product misuse [Not Recovered/Not Resolved]
  - Injection site reaction [Unknown]
  - Sleep disorder [Unknown]
  - Illness [Unknown]

NARRATIVE: CASE EVENT DATE: 20230811
